FAERS Safety Report 16183233 (Version 1)
Quarter: 2019Q2

REPORT INFORMATION
  Report Type: Spontaneous
  Country: BE (occurrence: BE)
  Receive Date: 20190411
  Receipt Date: 20190411
  Transmission Date: 20190711
  Serious: Yes (Death, Other)
  Sender: FDA-Public Use
  Company Number: BE-HIKMA PHARMACEUTICALS USA INC.-BE-H14001-19-02115

PATIENT
  Age: 67 Year
  Sex: Female
  Weight: 72 kg

DRUGS (5)
  1. CYTARABINE. [Suspect]
     Active Substance: CYTARABINE
     Route: 065
     Dates: start: 20171011
  2. IDARUBICIN [Suspect]
     Active Substance: IDARUBICIN
     Indication: ACUTE MYELOID LEUKAEMIA
     Route: 065
     Dates: start: 20170919
  3. LEVOFLOXACIN. [Concomitant]
     Active Substance: LEVOFLOXACIN
     Indication: INFECTION PROPHYLAXIS
     Route: 065
  4. CYTARABINE. [Suspect]
     Active Substance: CYTARABINE
     Indication: ACUTE MYELOID LEUKAEMIA
     Route: 065
     Dates: start: 20170919
  5. IDARUBICIN [Suspect]
     Active Substance: IDARUBICIN
     Route: 065
     Dates: start: 20171011

REACTIONS (10)
  - Hydrocephalus [Unknown]
  - CNS ventriculitis [Unknown]
  - Diarrhoea [Unknown]
  - Meningitis bacterial [Fatal]
  - Asthenia [Unknown]
  - Stomatococcal infection [Fatal]
  - Pseudomonas infection [Fatal]
  - Febrile neutropenia [Unknown]
  - Brain herniation [Unknown]
  - Oedema [Unknown]

NARRATIVE: CASE EVENT DATE: 20171023
